FAERS Safety Report 14391407 (Version 1)
Quarter: 2018Q1

REPORT INFORMATION
  Report Type: Spontaneous
  Country: US (occurrence: US)
  Receive Date: 20180116
  Receipt Date: 20180116
  Transmission Date: 20180509
  Serious: No
  Sender: FDA-Public Use
  Company Number: US-ASTRAZENECA-2018SE05859

PATIENT
  Age: 52 Year
  Sex: Female

DRUGS (1)
  1. BEVESPI AEROSPHERE [Suspect]
     Active Substance: FORMOTEROL FUMARATE\GLYCOPYRROLATE
     Indication: BRONCHIAL HYPERREACTIVITY
     Dosage: 9/4.8 MCG TWO INHALATIONS TWICE DAILY
     Route: 055

REACTIONS (3)
  - Chest pain [Unknown]
  - Off label use [Unknown]
  - Product use in unapproved indication [Unknown]
